FAERS Safety Report 5728957-7 (Version None)
Quarter: 2008Q2

REPORT INFORMATION
  Report Type: 
  Country: None (occurrence: None)
  Receive Date: 20080430
  Receipt Date: 20080124
  Transmission Date: 20081010
  Serious: No
  Sender: FDA-Public Use
  Company Number: 2008PV034024

PATIENT
  Age: 52 Year
  Sex: Female

DRUGS (8)
  1. SYMLIN (PRAMLINTIDE ACEATE)  INJECTION (0.6 MG/ML) [Suspect]
     Indication: TYPE 2 DIABETES MELLITUS
     Dosage: 90 MCG;PRN;SC ; 78 MCG;SC ; 66 MCG;SC ; 54 MCG;SC ; 42 MCG;SC ; 30 MCG;SC
     Route: 058
     Dates: start: 20071001, end: 20071101
  2. SYMLIN (PRAMLINTIDE ACEATE)  INJECTION (0.6 MG/ML) [Suspect]
     Indication: TYPE 2 DIABETES MELLITUS
     Dosage: 90 MCG;PRN;SC ; 78 MCG;SC ; 66 MCG;SC ; 54 MCG;SC ; 42 MCG;SC ; 30 MCG;SC
     Route: 058
     Dates: start: 20071101, end: 20071101
  3. SYMLIN (PRAMLINTIDE ACEATE)  INJECTION (0.6 MG/ML) [Suspect]
     Indication: TYPE 2 DIABETES MELLITUS
     Dosage: 90 MCG;PRN;SC ; 78 MCG;SC ; 66 MCG;SC ; 54 MCG;SC ; 42 MCG;SC ; 30 MCG;SC
     Route: 058
     Dates: start: 20071101, end: 20071101
  4. SYMLIN (PRAMLINTIDE ACEATE)  INJECTION (0.6 MG/ML) [Suspect]
     Indication: TYPE 2 DIABETES MELLITUS
     Dosage: 90 MCG;PRN;SC ; 78 MCG;SC ; 66 MCG;SC ; 54 MCG;SC ; 42 MCG;SC ; 30 MCG;SC
     Route: 058
     Dates: start: 20071101, end: 20071101
  5. SYMLIN (PRAMLINTIDE ACEATE)  INJECTION (0.6 MG/ML) [Suspect]
     Indication: TYPE 2 DIABETES MELLITUS
     Dosage: 90 MCG;PRN;SC ; 78 MCG;SC ; 66 MCG;SC ; 54 MCG;SC ; 42 MCG;SC ; 30 MCG;SC
     Route: 058
     Dates: start: 20071101, end: 20071101
  6. SYMLIN (PRAMLINTIDE ACEATE)  INJECTION (0.6 MG/ML) [Suspect]
     Indication: TYPE 2 DIABETES MELLITUS
     Dosage: 90 MCG;PRN;SC ; 78 MCG;SC ; 66 MCG;SC ; 54 MCG;SC ; 42 MCG;SC ; 30 MCG;SC
     Route: 058
     Dates: start: 20070101
  7. LANTUS [Concomitant]
  8. NOVOLOG [Concomitant]

REACTIONS (2)
  - INJECTION SITE BRUISING [None]
  - INJECTION SITE PAIN [None]
